FAERS Safety Report 6196402-6 (Version None)
Quarter: 2009Q2

REPORT INFORMATION
  Report Type: 
  Country: None (occurrence: None)
  Receive Date: 20090520
  Receipt Date: 20090508
  Transmission Date: 20091009
  Serious: Yes (Hospitalization)
  Sender: FDA-Public Use
  Company Number: DE-ELI_LILLY_AND_COMPANY-DE200905001675

PATIENT
  Sex: Male
  Weight: 132 kg

DRUGS (1)
  1. EXENATIDE [Suspect]
     Route: 058

REACTIONS (1)
  - CEREBROVASCULAR ACCIDENT [None]
